FAERS Safety Report 16419336 (Version 1)
Quarter: 2019Q2

REPORT INFORMATION
  Report Type: Spontaneous
  Country: ES (occurrence: ES)
  Receive Date: 20190612
  Receipt Date: 20190612
  Transmission Date: 20190711
  Serious: Yes (Hospitalization)
  Sender: FDA-Public Use
  Company Number: ES-SA-2019SA154371

PATIENT
  Age: 40 Year
  Sex: Female

DRUGS (5)
  1. LEMTRADA [Suspect]
     Active Substance: ALEMTUZUMAB
     Dosage: UNK
     Route: 041
     Dates: start: 20190603, end: 20190604
  2. INTERFERON (UNSPECIFIED) [Concomitant]
     Active Substance: UNSPECIFIED INGREDIENT
     Dosage: UNK UNK, UNK
     Route: 065
  3. LEMTRADA [Suspect]
     Active Substance: ALEMTUZUMAB
     Dosage: UNK UNK, UNK
     Route: 041
     Dates: start: 2018, end: 2018
  4. NATALIZUMAB [Concomitant]
     Active Substance: NATALIZUMAB
     Dosage: UNK UNK, UNK
     Route: 065
  5. COPAXONE [Concomitant]
     Active Substance: GLATIRAMER ACETATE
     Dosage: UNK UNK, UNK
     Route: 065

REACTIONS (2)
  - Lung disorder [Unknown]
  - Haemoptysis [Unknown]

NARRATIVE: CASE EVENT DATE: 201906
